FAERS Safety Report 5449335-4 (Version None)
Quarter: 2007Q3

REPORT INFORMATION
  Report Type: 
  Country: None (occurrence: None)
  Receive Date: 20070911
  Receipt Date: 20070904
  Transmission Date: 20080115
  Serious: Yes (Other)
  Sender: FDA-Public Use
  Company Number: BR-PFIZER INC-2007074309

PATIENT
  Sex: Female

DRUGS (2)
  1. CELEBRA [Suspect]
     Indication: MUSCULOSKELETAL PAIN
     Route: 048
  2. CELEBRA [Suspect]
     Indication: OSTEOARTHRITIS

REACTIONS (1)
  - UPPER LIMB FRACTURE [None]
